FAERS Safety Report 12325253 (Version 3)
Quarter: 2016Q2

REPORT INFORMATION
  Report Type: Spontaneous
  Country: IT (occurrence: IT)
  Receive Date: 20160502
  Receipt Date: 20160516
  Transmission Date: 20160815
  Serious: Yes (Hospitalization)
  Sender: FDA-Public Use
  Company Number: IT-ROCHE-1748170

PATIENT
  Age: 58 Year
  Sex: Female

DRUGS (8)
  1. HERCEPTIN [Suspect]
     Active Substance: TRASTUZUMAB
     Indication: BREAST CANCER METASTATIC
     Dosage: 150 MG 1 VIAL, INTRAVENOUS USE
     Route: 042
     Dates: start: 20150528, end: 20150528
  2. HERCEPTIN [Suspect]
     Active Substance: TRASTUZUMAB
     Dosage: 150 MG 1 VIAL, INTRAVENOUS USE
     Route: 042
     Dates: start: 20150618, end: 20160317
  3. NEBIVOLOL. [Concomitant]
     Active Substance: NEBIVOLOL
     Route: 065
     Dates: start: 20160406, end: 20160413
  4. AUGMENTIN [Concomitant]
     Active Substance: AMOXICILLIN\CLAVULANATE POTASSIUM
     Dosage: 875 MG + 125 MG FILM-COATED TABLETS 12 TABLETS
     Route: 048
     Dates: start: 20160412, end: 20160413
  5. PACLITAXEL. [Concomitant]
     Active Substance: PACLITAXEL
     Indication: BREAST CANCER METASTATIC
     Dosage: 6 MG/ML 1 GLASS VIAL, 300 MG / 50 ML
     Route: 042
     Dates: start: 20150528, end: 20150924
  6. PERJETA [Suspect]
     Active Substance: PERTUZUMAB
     Dosage: 420 MG VIAL (GLASS) - 30 MG/ML - 1 VIAL
     Route: 042
     Dates: start: 20150618, end: 20160317
  7. PERJETA [Suspect]
     Active Substance: PERTUZUMAB
     Indication: BREAST CANCER METASTATIC
     Dosage: 420 MG VIAL (GLASS) - 30 MG/ML - 1 VIAL
     Route: 042
     Dates: start: 20150528, end: 20150528
  8. CARDIAZOL-PARACODINA [Concomitant]
     Indication: COUGH
     Dosage: 20 MG/ML + 100 MG/MLBOTTLE WITH DROPPER, 10 ML
     Route: 048

REACTIONS (7)
  - Decreased appetite [Recovered/Resolved with Sequelae]
  - Cardiac failure [Recovered/Resolved with Sequelae]
  - Dyspnoea [Recovered/Resolved with Sequelae]
  - Asthenia [Recovered/Resolved with Sequelae]
  - Cough [Recovered/Resolved with Sequelae]
  - Tachycardia [Recovered/Resolved with Sequelae]
  - Nausea [Recovered/Resolved with Sequelae]

NARRATIVE: CASE EVENT DATE: 20160405
